FAERS Safety Report 5114522-1 (Version None)
Quarter: 2006Q3

REPORT INFORMATION
  Report Type: 
  Country: None (occurrence: None)
  Receive Date: 20060926
  Receipt Date: 20060912
  Transmission Date: 20061208
  Serious: Yes (Hospitalization)
  Sender: FDA-Public Use
  Company Number: PHHO2006FR15285

PATIENT
  Age: 85 Year
  Sex: Female

DRUGS (2)
  1. AMIODARONE HCL [Concomitant]
  2. LETROZOLE [Suspect]

REACTIONS (1)
  - CARDIAC FAILURE [None]
